FAERS Safety Report 12391772 (Version 3)
Quarter: 2016Q3

REPORT INFORMATION
  Report Type: Spontaneous
  Country: IT (occurrence: IT)
  Receive Date: 20160522
  Receipt Date: 20160916
  Transmission Date: 20161109
  Serious: Yes (Other)
  Sender: FDA-Public Use
  Company Number: IT-ROCHE-1761078

PATIENT
  Age: 78 Year
  Sex: Female
  Weight: 60 kg

DRUGS (5)
  1. NAVELBINE [Suspect]
     Active Substance: VINORELBINE TARTRATE
     Indication: BREAST CANCER
     Dosage: 20 MG SOFT CAPSULES^ 1 CAPSULE
     Route: 048
     Dates: start: 20140619, end: 20140929
  2. HERCEPTIN [Suspect]
     Active Substance: TRASTUZUMAB
     Dosage: 150 MG-VIAL FOR INTRAVENOUS USE
     Route: 042
     Dates: start: 2015, end: 20160609
  3. HERCEPTIN [Suspect]
     Active Substance: TRASTUZUMAB
     Indication: HER-2 POSITIVE BREAST CANCER
     Dosage: 150 MG-VIAL FOR INTRAVENOUS USE
     Route: 042
     Dates: start: 20140204
  4. HERCEPTIN [Suspect]
     Active Substance: TRASTUZUMAB
     Indication: HER-2 POSITIVE BREAST CANCER
     Dosage: 600 MG/5 ML-6 ML VIAL (GLASS) - 1 VIAL
     Route: 058
     Dates: start: 20150505, end: 20150603
  5. COMBISARTAN [Concomitant]
     Active Substance: HYDROCHLOROTHIAZIDE\VALSARTAN
     Indication: HYPERTENSION

REACTIONS (12)
  - Odynophagia [Unknown]
  - Cough [Unknown]
  - Diarrhoea [Unknown]
  - Pain in extremity [Unknown]
  - Dyspnoea [Unknown]
  - Cardiac failure [Unknown]
  - Chest pain [Unknown]
  - Pain [Unknown]
  - Ejection fraction decreased [Unknown]
  - Bone pain [Unknown]
  - Arthralgia [Unknown]
  - Vomiting [Unknown]

NARRATIVE: CASE EVENT DATE: 20140415
